FAERS Safety Report 8909461 (Version 1)
Quarter: 2012Q4

REPORT INFORMATION
  Report Type: 
  Country: GB (occurrence: GB)
  Receive Date: 20121115
  Receipt Date: 20121115
  Transmission Date: 20130627
  Serious: Yes (Other)
  Sender: FDA-Public Use
  Company Number: GB-JNJFOC-20120702293

PATIENT
  Age: 51 Year
  Sex: Female
  Weight: 110 kg

DRUGS (1)
  1. GOLIMUMAB [Suspect]
     Indication: PRODUCT USED FOR UNKNOWN INDICATION
     Route: 058
     Dates: start: 20120529

REACTIONS (1)
  - Sinusitis [Recovered/Resolved]
